FAERS Safety Report 10090156 (Version 1)
Quarter: 2014Q2

REPORT INFORMATION
  Report Type: Spontaneous
  Country: US (occurrence: None)
  Receive Date: 20140410
  Receipt Date: 20140410
  Transmission Date: 20141212
  Serious: Yes (Hospitalization)
  Sender: FDA-Public Use
  Company Number: 1261538

PATIENT
  Age: 54 Year
  Sex: Female
  Weight: 56.7 kg

DRUGS (11)
  1. ROCEPHINE (CEFTRIAXONE SODIUM) (CETRIAXONE SODIUM) [Suspect]
     Indication: ENDOCARDITIS
     Dates: start: 20130708, end: 20130711
  2. ROCEPHINE (CEFTRIAXONE SODIUM) (CETRIAXONE SODIUM) [Suspect]
     Indication: OSTEOMYELITIS
     Dates: start: 20130708, end: 20130711
  3. VANCOMYCIN (VANCOMYCIN) [Suspect]
     Indication: OSTEOMYELITIS
     Dates: start: 20130622, end: 20130703
  4. VANCOMYCIN (VANCOMYCIN) [Suspect]
     Indication: ENDOCARDITIS
     Dates: start: 20130622, end: 20130703
  5. DAPTOMYCIN (DAPTOMYCIN) [Suspect]
     Indication: ENDOCARDITIS
     Dates: start: 20130703, end: 20130708
  6. DAPTOMYCIN (DAPTOMYCIN) [Suspect]
     Indication: OSTEOMYELITIS
     Dates: start: 20130703, end: 20130708
  7. ZYVOX (LINEZOLID) [Suspect]
     Indication: OSTEOMYELITIS
     Dates: start: 20130711, end: 20130726
  8. ZYVOX (LINEZOLID) [Suspect]
     Indication: ENDOCARDITIS
     Dates: start: 20130711, end: 20130726
  9. SYNERCID (DALFOPRISTAN, QUINUPRISTIN) [Suspect]
     Indication: ENDOCARDITIS
  10. SYNERCID (DALFOPRISTAN, QUINUPRISTIN) [Suspect]
     Indication: OSTEOMYELITIS
  11. SYNERCID (DALFOPRISTAN, QUINUPRISTIN) [Suspect]
     Indication: OFF LABEL USE

REACTIONS (7)
  - Rash generalised [None]
  - Pyrexia [None]
  - Drug ineffective [None]
  - Anaemia [None]
  - White blood cell count increased [None]
  - Weight bearing difficulty [None]
  - Rash [None]
